FAERS Safety Report 7935761-8 (Version None)
Quarter: 2011Q4

REPORT INFORMATION
  Report Type: 
  Country: None (occurrence: None)
  Receive Date: 20111123
  Receipt Date: 20111110
  Transmission Date: 20120403
  Serious: Yes (Hospitalization)
  Sender: FDA-Public Use
  Company Number: US-ELI_LILLY_AND_COMPANY-US201110002036

PATIENT
  Sex: Female

DRUGS (12)
  1. VITAMIN D [Concomitant]
     Dosage: UNK, QD
  2. VITAMIN B-12 [Concomitant]
     Dosage: UNK, QD
     Route: 060
  3. ADVAIR DISKUS 100/50 [Concomitant]
     Dosage: UNK, QD
  4. FORTEO [Suspect]
     Indication: OSTEOPOROSIS
     Dosage: 20 UG, QD
  5. FORTEO [Suspect]
     Dosage: 20 UG, QD
     Dates: start: 20111007, end: 20111018
  6. GABAPENTIN [Concomitant]
     Indication: NEURALGIA
     Dosage: 300 MG, BID
  7. LOVAZA [Concomitant]
     Dosage: 1000 MG, QD
  8. OXYCODONE HCL AND ACETAMINOPHEN [Concomitant]
     Dosage: 5.325 MG, BID
  9. OXYCODONE HCL [Concomitant]
  10. ADVAIR DISKUS 100/50 [Concomitant]
     Dosage: UNK, PRN
  11. CALCIUM CARBONATE [Concomitant]
  12. OMEPRAZOLE [Concomitant]
     Indication: GASTRIC DISORDER
     Dosage: UNK, QD

REACTIONS (9)
  - PHARYNGEAL DISORDER [None]
  - LOSS OF CONSCIOUSNESS [None]
  - NASOPHARYNGITIS [None]
  - MUSCULAR WEAKNESS [None]
  - CARDIAC PACEMAKER INSERTION [None]
  - ASTHENIA [None]
  - PAIN [None]
  - DRUG DOSE OMISSION [None]
  - INTENTIONAL DRUG MISUSE [None]
